FAERS Safety Report 8238826 (Version 2)
Quarter: 2013Q1

REPORT INFORMATION
  Report Type: Spontaneous
  Country: BR (occurrence: BR)
  Receive Date: 20111110
  Receipt Date: 20130218
  Transmission Date: 20140127
  Serious: Yes (Hospitalization)
  Sender: FDA-Public Use
  Company Number: BR-GENZYME-FABR-1002183

PATIENT
  Age: 31 Year
  Sex: Male

DRUGS (4)
  1. FABRAZYME [Suspect]
     Indication: FABRY^S DISEASE
     Dosage: UNK UNK
     Route: 042
     Dates: start: 20021029, end: 201103
  2. FABRAZYME [Suspect]
     Dosage: 1.5 MG/KG, Q2W
     Route: 042
     Dates: start: 20111005
  3. VASTAREL [Concomitant]
     Dosage: 1 OTHER, QD
     Dates: start: 20110930
  4. AAS [Concomitant]
     Dosage: 200 MG, QD
     Dates: start: 20110930

REACTIONS (4)
  - Angina pectoris [Recovered/Resolved]
  - Angiokeratoma [Not Recovered/Not Resolved]
  - Cardiac hypertrophy [Not Recovered/Not Resolved]
  - Condition aggravated [Unknown]
